FAERS Safety Report 8106816-2 (Version None)
Quarter: 2012Q1

REPORT INFORMATION
  Report Type: 
  Country: None (occurrence: None)
  Receive Date: 20120130
  Receipt Date: 20120116
  Transmission Date: 20120608
  Serious: Yes (Death)
  Sender: FDA-Public Use
  Company Number: 2012POI057500017

PATIENT
  Age: 54 Year
  Sex: Male

DRUGS (5)
  1. ROXICODONE [Suspect]
     Dosage: PER ORAL
     Route: 048
     Dates: end: 20100101
  2. METHADONE HCL [Suspect]
     Dosage: PER ORAL
     Route: 048
     Dates: end: 20100101
  3. IBUPROFEN [Suspect]
     Dosage: PER ORAL
     Route: 048
     Dates: end: 20100101
  4. ACETAMINOPHEN AND OXYCODONE HCL [Suspect]
     Dosage: PER ORAL
     Route: 048
  5. NADOLOL [Suspect]
     Dosage: PER ORAL
     Route: 048
     Dates: end: 20100101

REACTIONS (3)
  - COMPLETED SUICIDE [None]
  - CARDIAC ARREST [None]
  - RESPIRATORY ARREST [None]
